FAERS Safety Report 8892726 (Version 1)
Quarter: 2012Q4

REPORT INFORMATION
  Report Type: 
  Country: US (occurrence: US)
  Receive Date: 20121107
  Receipt Date: 20121107
  Transmission Date: 20130627
  Serious: No
  Sender: FDA-Public Use
  Company Number: US-AMGEN-USASP2011054539

PATIENT
  Age: 43 Year
  Sex: Male

DRUGS (4)
  1. ENBREL [Suspect]
     Indication: PRODUCT USED FOR UNKNOWN INDICATION
     Dosage: 50 UNK, UNK
     Route: 058
  2. FLONASE [Concomitant]
  3. ADVIL                              /00044201/ [Concomitant]
  4. CLARITIN                           /00413701/ [Concomitant]

REACTIONS (1)
  - Localised infection [Unknown]
